FAERS Safety Report 7724638-9 (Version None)
Quarter: 2011Q3

REPORT INFORMATION
  Report Type: 
  Country: None (occurrence: None)
  Receive Date: 20110829
  Receipt Date: 20110818
  Transmission Date: 20111222
  Serious: Yes (Hospitalization)
  Sender: FDA-Public Use
  Company Number: 2011AP001803

PATIENT
  Age: 29 Year
  Sex: Male

DRUGS (5)
  1. GABAPENTIN [Concomitant]
  2. PHENYTOIN [Concomitant]
  3. LEVETIRACETAM [Suspect]
     Indication: PROPHYLAXIS
     Dosage: 1 TAB;TAB;PO;TID
     Route: 048
     Dates: start: 20110803, end: 20110811
  4. LEVETIRACETAM [Suspect]
     Indication: CONVULSION
     Dosage: 1 TAB;TAB;PO;TID
     Route: 048
     Dates: start: 20110803, end: 20110811
  5. VALPROIC ACID [Concomitant]

REACTIONS (10)
  - BLOOD SODIUM DECREASED [None]
  - LIVER FUNCTION TEST ABNORMAL [None]
  - RASH PRURITIC [None]
  - WHITE BLOOD CELL COUNT DECREASED [None]
  - BLOOD POTASSIUM DECREASED [None]
  - BILIRUBIN CONJUGATED INCREASED [None]
  - ASPARTATE AMINOTRANSFERASE INCREASED [None]
  - GAMMA-GLUTAMYLTRANSFERASE INCREASED [None]
  - PLATELET COUNT DECREASED [None]
  - BLOOD ALKALINE PHOSPHATASE INCREASED [None]
